FAERS Safety Report 5098348-3 (Version None)
Quarter: 2006Q3

REPORT INFORMATION
  Report Type: 
  Country: None (occurrence: None)
  Receive Date: 20060907
  Receipt Date: 20060605
  Transmission Date: 20061208
  Serious: Yes (Other)
  Sender: FDA-Public Use
  Company Number: PHFR2006GB01953

PATIENT
  Age: 38 Year
  Sex: Male

DRUGS (1)
  1. CLOZARIL [Suspect]
     Indication: SCHIZOPHRENIA
     Dosage: 300MG/DAY
     Route: 048
     Dates: start: 20040715

REACTIONS (3)
  - BODY MASS INDEX INCREASED [None]
  - HYPERTENSION [None]
  - OBESITY [None]
